FAERS Safety Report 23269482 (Version 2)
Quarter: 2023Q4

REPORT INFORMATION
  Report Type: Spontaneous
  Country: BR (occurrence: BR)
  Receive Date: 20231207
  Receipt Date: 20231226
  Transmission Date: 20240110
  Serious: Yes (Hospitalization, Other)
  Sender: FDA-Public Use
  Company Number: BR-JNJFOC-20231177285

PATIENT
  Age: 70 Year
  Sex: Male
  Weight: 80 kg

DRUGS (4)
  1. DARATUMUMAB [Suspect]
     Active Substance: DARATUMUMAB
     Indication: Plasma cell myeloma
     Route: 058
     Dates: start: 20231025
  2. DARATUMUMAB [Suspect]
     Active Substance: DARATUMUMAB
     Route: 058
     Dates: start: 20231129
  3. DEXAMETHASONE [Suspect]
     Active Substance: DEXAMETHASONE
     Indication: Plasma cell myeloma
     Route: 065
  4. DEXAMETHASONE [Suspect]
     Active Substance: DEXAMETHASONE
     Route: 065
     Dates: start: 20231129

REACTIONS (17)
  - Depression [Unknown]
  - Confusional state [Not Recovered/Not Resolved]
  - Psychomotor hyperactivity [Recovered/Resolved]
  - Cauda equina syndrome [Unknown]
  - Lumbar vertebral fracture [Unknown]
  - Septic shock [Unknown]
  - Diabetic ketoacidosis [Unknown]
  - Hyperglycaemia [Not Recovered/Not Resolved]
  - Somnolence [Unknown]
  - Infection [Unknown]
  - Diarrhoea [Unknown]
  - Muscle spasms [Unknown]
  - Psychomotor skills impaired [Unknown]
  - Slow speech [Unknown]
  - Cognitive disorder [Unknown]
  - Vomiting [Unknown]
  - Intentional product use issue [Unknown]

NARRATIVE: CASE EVENT DATE: 20231203
